FAERS Safety Report 16125191 (Version 1)
Quarter: 2019Q1

REPORT INFORMATION
  Report Type: Spontaneous
  Country: BE (occurrence: BE)
  Receive Date: 20190327
  Receipt Date: 20190327
  Transmission Date: 20190418
  Serious: Yes (Hospitalization, Other)
  Sender: FDA-Public Use
  Company Number: BE-ELI_LILLY_AND_COMPANY-BE201903011279

PATIENT
  Age: 63 Year
  Sex: Male

DRUGS (2)
  1. ZYPADHERA [Suspect]
     Active Substance: OLANZAPINE PAMOATE
     Indication: PRODUCT USED FOR UNKNOWN INDICATION
     Dosage: 405 MG, 2/M
     Route: 030
     Dates: start: 201809
  2. CLOPIXOL [ZUCLOPENTHIXOL HYDROCHLORIDE] [Concomitant]
     Dosage: UNK, UNKNOWN

REACTIONS (7)
  - Post-injection delirium sedation syndrome [Unknown]
  - Delirium [Unknown]
  - Tongue disorder [Unknown]
  - Somnolence [Unknown]
  - Extrapyramidal disorder [Unknown]
  - Oromandibular dystonia [Unknown]
  - Dry mouth [Unknown]
